FAERS Safety Report 18199981 (Version 4)
Quarter: 2021Q2

REPORT INFORMATION
  Report Type: Spontaneous
  Country: US (occurrence: US)
  Receive Date: 20200826
  Receipt Date: 20210416
  Transmission Date: 20210717
  Serious: Yes (Disabling, Other)
  Sender: FDA-Public Use
  Company Number: US-PURDUE-USA-2020-0162814

PATIENT
  Sex: Male

DRUGS (16)
  1. OXYCODONE HCL TABLETS (RHODES 91?490) [Suspect]
     Active Substance: OXYCODONE HYDROCHLORIDE
     Indication: ARTHRITIS
  2. TRAMADOL CR TABLETS (RHODES 21?745) [Suspect]
     Active Substance: TRAMADOL
     Indication: LYMPHOMA
     Dosage: 200 MG, UNK
     Route: 048
     Dates: start: 201005, end: 2018
  3. OXYCONTIN [Suspect]
     Active Substance: OXYCODONE HYDROCHLORIDE
     Indication: NEUROPATHY PERIPHERAL
  4. GABAPENTIN. [Suspect]
     Active Substance: GABAPENTIN
     Indication: LYMPHOMA
     Dosage: 3200 MG, DAILY
     Route: 065
     Dates: start: 2011, end: 2019
  5. OXYCODONE HCL CR TABLETS (SIMILAR TO NDA 22?272) [Suspect]
     Active Substance: OXYCODONE HYDROCHLORIDE
     Indication: NEUROPATHY PERIPHERAL
  6. OXYCODONE HYDROCHLORIDE (SIMILAR TO NDA 22?272) [Suspect]
     Active Substance: OXYCODONE HYDROCHLORIDE
     Indication: CHEMOTHERAPY
     Dosage: 10 MG, (EVERY 4HRS)
     Route: 065
     Dates: start: 201006
  7. ULTRAM [Suspect]
     Active Substance: TRAMADOL HYDROCHLORIDE
     Indication: LYMPHOMA
     Dosage: 200 MG, DAILY
     Route: 065
     Dates: start: 201406, end: 2018
  8. OXYCONTIN [Suspect]
     Active Substance: OXYCODONE HYDROCHLORIDE
     Indication: LYMPHOMA
     Dosage: 80 MG, BID
     Route: 048
     Dates: start: 201006
  9. DILAUDID [Suspect]
     Active Substance: HYDROMORPHONE HYDROCHLORIDE
     Indication: NEUROPATHY PERIPHERAL
  10. OXYCODONE HCL TABLETS (RHODES 91?490) [Suspect]
     Active Substance: OXYCODONE HYDROCHLORIDE
     Indication: LYMPHOMA
     Dosage: 10 MG, (EVERY 4 HRS)
     Route: 048
     Dates: start: 201006
  11. DILAUDID [Suspect]
     Active Substance: HYDROMORPHONE HYDROCHLORIDE
     Indication: LYMPHOMA
     Dosage: 4 MG, (EVERY 4HRS)
     Route: 048
     Dates: start: 201005
  12. OXYCODONE HCL CR TABLETS (SIMILAR TO NDA 22?272) [Suspect]
     Active Substance: OXYCODONE HYDROCHLORIDE
     Indication: ARTHRITIS
  13. OXYCONTIN [Suspect]
     Active Substance: OXYCODONE HYDROCHLORIDE
     Indication: ARTHRITIS
  14. DILAUDID [Suspect]
     Active Substance: HYDROMORPHONE HYDROCHLORIDE
     Indication: ARTHRITIS
  15. OXYCODONE HCL CR TABLETS (SIMILAR TO NDA 22?272) [Suspect]
     Active Substance: OXYCODONE HYDROCHLORIDE
     Indication: LYMPHOMA
     Dosage: 10 MG, (EVERY 4 HRS)
     Route: 048
     Dates: start: 201006
  16. OXYCODONE HCL TABLETS (RHODES 91?490) [Suspect]
     Active Substance: OXYCODONE HYDROCHLORIDE
     Indication: NEUROPATHY PERIPHERAL

REACTIONS (4)
  - Drug dependence [Unknown]
  - Neuropathy peripheral [Unknown]
  - Arthritis [Unknown]
  - Product prescribing error [Unknown]
